FAERS Safety Report 20430323 (Version 1)
Quarter: 2022Q1

REPORT INFORMATION
  Report Type: Spontaneous
  Country: US (occurrence: US)
  Receive Date: 20220204
  Receipt Date: 20220204
  Transmission Date: 20220423
  Serious: Yes (Other)
  Sender: FDA-Public Use
  Company Number: US-TAKEDA-2022TUS005793

PATIENT
  Age: 10 Year
  Sex: Female

DRUGS (1)
  1. CEPROTIN [Suspect]
     Active Substance: PROTEIN C
     Indication: Protein C deficiency
     Dosage: 60 UNITS/KG ON MON, WED AND FRI
     Route: 058

REACTIONS (2)
  - Drug ineffective [Unknown]
  - Off label use [Unknown]
